FAERS Safety Report 8034229-0 (Version None)
Quarter: 2012Q1

REPORT INFORMATION
  Report Type: 
  Country: None (occurrence: None)
  Receive Date: 20120110
  Receipt Date: 20120103
  Transmission Date: 20120608
  Serious: Yes (Hospitalization)
  Sender: FDA-Public Use
  Company Number: US-BAYER-2011-046332

PATIENT
  Age: 29 Year
  Sex: Female
  Weight: 120 kg

DRUGS (13)
  1. YASMIN [Suspect]
     Indication: CONTRACEPTION
     Dosage: UNK
     Route: 048
     Dates: start: 20040301, end: 20091201
  2. XANAX [Concomitant]
     Indication: BIPOLAR I DISORDER
     Dosage: 1 MG, BID
  3. ALBUTEROL [Concomitant]
     Indication: ASTHMA
     Dosage: UNK
     Dates: start: 19930101
  4. ELAVIL [Concomitant]
     Indication: BIPOLAR DISORDER
  5. YAZ [Suspect]
     Indication: CONTRACEPTION
     Dosage: UNK
     Route: 048
     Dates: start: 20040301, end: 20091201
  6. ELAVIL [Concomitant]
     Indication: MIGRAINE
  7. ZOFRAN [Concomitant]
     Dosage: 4 MG, THREE TIMES A DAY AS NEEDED
  8. PREVACID [Concomitant]
  9. MAXALT [Concomitant]
     Dosage: 10 MG, PRN
  10. PROTONIX [Concomitant]
     Route: 042
  11. PROVENTIL [Concomitant]
     Indication: ASTHMA
     Dosage: UNK
     Dates: start: 19930101
  12. AMARYL [Concomitant]
     Indication: DIABETES MELLITUS
     Dosage: 2 MG, BID
     Dates: start: 20090101
  13. PERCOCET [Concomitant]
     Dosage: THREE TIMES A DAY AN NEEDED

REACTIONS (6)
  - CHOLECYSTITIS CHRONIC [None]
  - GALLBLADDER DISORDER [None]
  - QUALITY OF LIFE DECREASED [None]
  - INJURY [None]
  - DEFORMITY [None]
  - PAIN [None]
